FAERS Safety Report 13345691 (Version 2)
Quarter: 2017Q2

REPORT INFORMATION
  Report Type: Spontaneous
  Country: FR (occurrence: FR)
  Receive Date: 20170317
  Receipt Date: 20170403
  Transmission Date: 20170830
  Serious: Yes (Hospitalization)
  Sender: FDA-Public Use
  Company Number: FR-ROCHE-1907920

PATIENT
  Age: 66 Year
  Sex: Female

DRUGS (5)
  1. CANDESARTAN. [Concomitant]
     Active Substance: CANDESARTAN
     Indication: PRODUCT USED FOR UNKNOWN INDICATION
     Route: 065
  2. CERIS [Concomitant]
     Active Substance: TROSPIUM CHLORIDE
     Indication: PRODUCT USED FOR UNKNOWN INDICATION
     Route: 065
  3. STILNOX [Concomitant]
     Active Substance: ZOLPIDEM TARTRATE
     Indication: PRODUCT USED FOR UNKNOWN INDICATION
     Route: 065
  4. LUCENTIS [Suspect]
     Active Substance: RANIBIZUMAB
     Indication: PATHOLOGIC MYOPIA
     Dosage: UNK (RIGHT EYE)
     Route: 031
     Dates: start: 20161223, end: 20161223
  5. LUCENTIS [Suspect]
     Active Substance: RANIBIZUMAB
     Dosage: UNK (RIGHT EYE)
     Route: 031
     Dates: start: 20170131, end: 20170131

REACTIONS (1)
  - Coronary artery dissection [Recovering/Resolving]

NARRATIVE: CASE EVENT DATE: 20170211
